FAERS Safety Report 5890443-1 (Version None)
Quarter: 2008Q3

REPORT INFORMATION
  Report Type: 
  Country: None (occurrence: None)
  Receive Date: 20080922
  Receipt Date: 20080910
  Transmission Date: 20090109
  Serious: Yes (Disabling, Other)
  Sender: FDA-Public Use
  Company Number: GB-RANBAXY-2008RR-17994

PATIENT

DRUGS (1)
  1. SIMVASTATIN 5MG TABLETS [Suspect]
     Indication: DIABETES MELLITUS
     Dosage: 20 MG, UNK
     Route: 048

REACTIONS (2)
  - NIGHTMARE [None]
  - PERSONALITY CHANGE [None]
